FAERS Safety Report 14940278 (Version 18)
Quarter: 2020Q2

REPORT INFORMATION
  Report Type: Report from Study
  Country: CO (occurrence: CO)
  Receive Date: 20180525
  Receipt Date: 20200604
  Transmission Date: 20200713
  Serious: Yes (Other)
  Sender: FDA-Public Use
  Company Number: CO-SA-2017SA260368

PATIENT

DRUGS (1)
  1. ALEMTUZUMAB [Suspect]
     Active Substance: ALEMTUZUMAB
     Indication: MULTIPLE SCLEROSIS
     Dosage: 12 MG, QD
     Route: 041
     Dates: start: 20171115, end: 20171117

REACTIONS (17)
  - Urinary tract infection bacterial [Not Recovered/Not Resolved]
  - Bacteriuria [Unknown]
  - pH urine increased [Recovered/Resolved]
  - Urinary sediment present [Recovered/Resolved]
  - Lymphocyte percentage decreased [Recovered/Resolved]
  - Red blood cells urine positive [Recovered/Resolved]
  - Lymphocyte count decreased [Not Recovered/Not Resolved]
  - Blood creatinine increased [Recovered/Resolved]
  - Proteinuria [Recovered/Resolved]
  - Haematuria [Recovered/Resolved]
  - Leukocyturia [Unknown]
  - Crystal urine present [Recovered/Resolved]
  - Nitrite urine present [Unknown]
  - Crystalluria [Recovered/Resolved]
  - Neutrophil percentage increased [Recovered/Resolved]
  - White blood cell count decreased [Recovered/Resolved]
  - Urobilinogen urine increased [Recovered/Resolved]

NARRATIVE: CASE EVENT DATE: 20171214
